FAERS Safety Report 9535951 (Version 1)
Quarter: 2013Q3

REPORT INFORMATION
  Report Type: Spontaneous
  Country: US (occurrence: None)
  Receive Date: 20130917
  Receipt Date: 20130917
  Transmission Date: 20140515
  Serious: No
  Sender: FDA-Public Use
  Company Number: None

PATIENT
  Age: 54 Year
  Sex: Female
  Weight: 80.74 kg

DRUGS (1)
  1. BELVIQ 10MG EISAI [Suspect]
     Indication: WEIGHT CONTROL
     Dosage: 1 PILL TWICE DAILY TAKEN BY MOUTH?
     Route: 048
     Dates: start: 20130910, end: 20130922

REACTIONS (9)
  - Musculoskeletal stiffness [None]
  - Confusional state [None]
  - Thinking abnormal [None]
  - Coordination abnormal [None]
  - Headache [None]
  - Disturbance in attention [None]
  - Fatigue [None]
  - Asthenia [None]
  - Vision blurred [None]
